FAERS Safety Report 6304538-1 (Version None)
Quarter: 2009Q3

REPORT INFORMATION
  Report Type: 
  Country: None (occurrence: None)
  Receive Date: 20090806
  Receipt Date: 20090723
  Transmission Date: 20100115
  Serious: Yes (Disabling, Other)
  Sender: FDA-Public Use
  Company Number: 2009PV000062

PATIENT
  Age: 52 Year
  Sex: Female

DRUGS (3)
  1. DEPOCYT [Suspect]
     Indication: METASTASES TO MENINGES
     Dosage: 50 MG;UNK;INTH
     Route: 037
     Dates: start: 20090716
  2. DEXAMETHASONE [Concomitant]
  3. PANTOPRAZOLE SODIUM [Concomitant]

REACTIONS (5)
  - COMA [None]
  - DEAFNESS [None]
  - EPILEPSY [None]
  - FACIAL PARESIS [None]
  - SOPOR [None]
